FAERS Safety Report 23777965 (Version 2)
Quarter: 2024Q2

REPORT INFORMATION
  Report Type: Spontaneous
  Country: US (occurrence: US)
  Receive Date: 20240424
  Receipt Date: 20240503
  Transmission Date: 20240716
  Serious: Yes (Life-Threatening, Hospitalization, Other)
  Sender: FDA-Public Use
  Company Number: US-BAXTER-2024BAX017086

PATIENT
  Age: 70 Year
  Sex: Female

DRUGS (23)
  1. NEXTERONE [Suspect]
     Active Substance: AMIODARONE HYDROCHLORIDE
     Indication: Atrial flutter
     Dosage: 150 MG IV BOLUS
     Route: 040
  2. NEXTERONE [Suspect]
     Active Substance: AMIODARONE HYDROCHLORIDE
     Indication: Atrioventricular block
     Dosage: INFUSION, 1 MG/MIN
     Route: 065
  3. NEXTERONE [Suspect]
     Active Substance: AMIODARONE HYDROCHLORIDE
     Dosage: 150 MG IV BOLUS FOLLOWED BY 1 MG/MIN INFUSION
     Route: 040
  4. MAGNESIUM SULFATE [Suspect]
     Active Substance: MAGNESIUM SULFATE\MAGNESIUM SULFATE HEPTAHYDRATE
     Indication: Torsade de pointes
     Dosage: 2 G
     Route: 042
  5. MAGNESIUM SULFATE [Suspect]
     Active Substance: MAGNESIUM SULFATE\MAGNESIUM SULFATE HEPTAHYDRATE
     Dosage: FOLLOWED BY REPEAT INFUSIONS IF NEEDED
     Route: 065
  6. METOPROLOL TARTRATE [Suspect]
     Active Substance: METOPROLOL TARTRATE
     Indication: Atrial flutter
     Dosage: 5 MG
     Route: 042
  7. METOPROLOL TARTRATE [Suspect]
     Active Substance: METOPROLOL TARTRATE
     Indication: Atrioventricular block
     Dosage: 5 MG
     Route: 065
  8. METOPROLOL TARTRATE [Suspect]
     Active Substance: METOPROLOL TARTRATE
     Dosage: 5 MG EVERY 6 H
     Route: 042
  9. FUROSEMIDE [Concomitant]
     Active Substance: FUROSEMIDE
     Dosage: 40 MG DAILY, HOME MEDICATION
     Route: 065
  10. DIGOXIN [Concomitant]
     Active Substance: DIGOXIN
     Indication: Atrial flutter
     Dosage: 0.25 MG
     Route: 065
  11. DIGOXIN [Concomitant]
     Active Substance: DIGOXIN
     Indication: Atrioventricular block
     Dosage: 0.25 MG
     Route: 065
  12. DIGOXIN [Concomitant]
     Active Substance: DIGOXIN
     Dosage: LOADING DOSE
     Route: 065
  13. DIGOXIN [Concomitant]
     Active Substance: DIGOXIN
     Dosage: TWO DOSES OF DIGOXIN 0.25 MG
     Route: 065
  14. LASIX [Concomitant]
     Active Substance: FUROSEMIDE
     Indication: Polyuria
     Dosage: 40 MG
     Route: 042
  15. LASIX [Concomitant]
     Active Substance: FUROSEMIDE
     Dosage: 40 MG TWICE DAILY
     Route: 042
  16. ATORVASTATIN [Concomitant]
     Active Substance: ATORVASTATIN
     Dosage: 40 MG, HOME MEDICATION
     Route: 065
  17. ATORVASTATIN [Concomitant]
     Active Substance: ATORVASTATIN
     Dosage: 80 MG RESUMED
     Route: 065
  18. PLAVIX [Concomitant]
     Active Substance: CLOPIDOGREL BISULFATE
     Dosage: 75 M,  CLOPIDOGREL HOME MEDICATION
     Route: 065
  19. PLAVIX [Concomitant]
     Active Substance: CLOPIDOGREL BISULFATE
     Dosage: 75 MG
     Route: 065
  20. APIXABAN [Concomitant]
     Active Substance: APIXABAN
     Dosage: 5 MG TWICE DAILY, HOME MEDICATION
     Route: 065
  21. APIXABAN [Concomitant]
     Active Substance: APIXABAN
     Dosage: 5 MG TWICE DAILY, RESUMED
     Route: 065
  22. CARVEDILOL [Concomitant]
     Active Substance: CARVEDILOL
     Dosage: 12.5 MG TWICE DAILY, HOME MEDICATION
     Route: 065
  23. OXYGEN [Concomitant]
     Active Substance: OXYGEN
     Dosage: 2L NASAL CANNULA
     Route: 045

REACTIONS (5)
  - Torsade de pointes [Unknown]
  - Electrocardiogram QT prolonged [Recovering/Resolving]
  - Ventricular tachycardia [Recovered/Resolved]
  - Ventricular extrasystoles [Unknown]
  - Sinus bradycardia [Unknown]
